FAERS Safety Report 8540917-X (Version None)
Quarter: 2012Q3

REPORT INFORMATION
  Report Type: 
  Country: None (occurrence: None)
  Receive Date: 20120726
  Receipt Date: 20120726
  Transmission Date: 20120928
  Serious: No
  Sender: FDA-Public Use
  Company Number: US-PFIZER INC-2012085030

PATIENT
  Sex: Female

DRUGS (2)
  1. EFFEXOR XR [Suspect]
     Dosage: 75 MG, UNK
     Dates: start: 20120412, end: 20120101
  2. EFFEXOR XR [Suspect]
     Dosage: 150 MG, UNK
     Dates: start: 20120101, end: 20120101

REACTIONS (3)
  - HEADACHE [None]
  - CONSTIPATION [None]
  - EUPHORIC MOOD [None]
